FAERS Safety Report 6197440-X (Version None)
Quarter: 2009Q2

REPORT INFORMATION
  Report Type: 
  Country: None (occurrence: None)
  Receive Date: 20090521
  Receipt Date: 20090520
  Transmission Date: 20091009
  Serious: No
  Sender: FDA-Public Use
  Company Number: US-B.I. PHARMACEUTICALS,INC./RIDGEFIELD-2009-BP-05303BP

PATIENT
  Sex: Female

DRUGS (5)
  1. COMBIVENT [Suspect]
     Indication: CHRONIC OBSTRUCTIVE PULMONARY DISEASE
     Dosage: 12PUF
     Route: 055
     Dates: start: 20090201
  2. LABETALOL HCL [Concomitant]
     Indication: HYPERTENSION
     Dosage: 400MG
     Route: 048
  3. AMLODIPINE [Concomitant]
     Indication: HYPERTENSION
     Dosage: 5MG
     Route: 048
  4. VICODIN [Concomitant]
     Indication: ARTHRITIS
     Route: 048
  5. LORAZEPAM [Concomitant]
     Indication: NERVOUSNESS
     Route: 048

REACTIONS (3)
  - DRUG INEFFECTIVE [None]
  - DRUG PRESCRIBING ERROR [None]
  - NASAL CONGESTION [None]
